FAERS Safety Report 7459483-5 (Version None)
Quarter: 2011Q2

REPORT INFORMATION
  Report Type: 
  Country: None (occurrence: None)
  Receive Date: 20110505
  Receipt Date: 20110426
  Transmission Date: 20111010
  Serious: Yes (Other)
  Sender: FDA-Public Use
  Company Number: US-US-EMD SERONO, INC.-7051391

PATIENT
  Sex: Female

DRUGS (8)
  1. LEXAPRO [Concomitant]
     Indication: DEPRESSION
  2. METHYLIN ER [Concomitant]
  3. IBUPROFEN [Concomitant]
     Indication: PREMEDICATION
  4. EFFEXOR [Concomitant]
     Indication: DEPRESSION
  5. GABAPENTIN [Concomitant]
     Indication: PAIN
  6. MECLIZINE [Concomitant]
     Indication: DIZZINESS
  7. VITAMIN B-12 [Concomitant]
  8. REBIF [Suspect]
     Indication: MULTIPLE SCLEROSIS
     Route: 058
     Dates: start: 20110317

REACTIONS (4)
  - MULTIPLE SCLEROSIS RELAPSE [None]
  - CARDIAC FLUTTER [None]
  - SEXUAL DYSFUNCTION [None]
  - INFLUENZA LIKE ILLNESS [None]
